FAERS Safety Report 6895493-4 (Version None)
Quarter: 2010Q3

REPORT INFORMATION
  Report Type: 
  Country: None (occurrence: None)
  Receive Date: 20100802
  Receipt Date: 20100723
  Transmission Date: 20110219
  Serious: Yes (Hospitalization)
  Sender: FDA-Public Use
  Company Number: PHHO2010US11296

PATIENT
  Sex: Female
  Weight: 60.9 kg

DRUGS (5)
  1. EXELON [Suspect]
     Indication: DEMENTIA ALZHEIMER'S TYPE
     Dosage: UNK
     Route: 062
     Dates: start: 20100325, end: 20100702
  2. EXELON [Suspect]
     Indication: DEMENTIA ALZHEIMER'S TYPE
     Dosage: NO TREATMENT
     Route: 062
  3. BLINDED NO TREATMENT RECEIVED NOMED [Suspect]
     Indication: DEMENTIA ALZHEIMER'S TYPE
     Dosage: NO TREATMENT
     Route: 062
  4. JANUMET [Concomitant]
  5. METFORMIN HCL [Concomitant]

REACTIONS (6)
  - ARRHYTHMIA [None]
  - HYPERGLYCAEMIA [None]
  - PNEUMONIA [None]
  - PYREXIA [None]
  - SLUGGISHNESS [None]
  - UNRESPONSIVE TO STIMULI [None]
